FAERS Safety Report 7269269-2 (Version None)
Quarter: 2011Q1

REPORT INFORMATION
  Report Type: 
  Country: None (occurrence: None)
  Receive Date: 20110202
  Receipt Date: 20110118
  Transmission Date: 20110831
  Serious: Yes (Death, Hospitalization)
  Sender: FDA-Public Use
  Company Number: JP-RANBAXY-2011US-41402

PATIENT
  Age: 72 Year
  Sex: Female
  Weight: 61 kg

DRUGS (6)
  1. VERAPAMIL [Suspect]
     Dosage: UNK
     Route: 065
  2. NICARDIPINE HYDROCHLORIDE [Concomitant]
     Indication: PRODUCT USED FOR UNKNOWN INDICATION
     Dosage: 40 MG DAILY
     Route: 065
  3. ATENOLOL [Suspect]
     Indication: ARRHYTHMIA SUPRAVENTRICULAR
     Dosage: 25 MG, DAILY
     Route: 065
  4. VERAPAMIL [Suspect]
     Dosage: 160 MG, DAILY
     Route: 065
  5. PIRMENOL HYDROCHLORIDE [Concomitant]
     Indication: PRODUCT USED FOR UNKNOWN INDICATION
     Dosage: 100 MG, DAILY
     Route: 065
  6. VERAPAMIL [Suspect]
     Indication: ARRHYTHMIA SUPRAVENTRICULAR
     Dosage: UNK, UNK
     Route: 042

REACTIONS (4)
  - CARDIOGENIC SHOCK [None]
  - DRUG INTERACTION [None]
  - HEPATIC FAILURE [None]
  - OFF LABEL USE [None]
